FAERS Safety Report 11414877 (Version 1)
Quarter: 2015Q3

REPORT INFORMATION
  Report Type: Spontaneous
  Country: JP (occurrence: None)
  Receive Date: 20150821
  Receipt Date: 20150821
  Transmission Date: 20151125
  Serious: Yes (Other)
  Sender: FDA-Public Use
  Company Number: JP-2015INT000504

PATIENT

DRUGS (3)
  1. 5-FLUOROURACIL /00098801/ [Suspect]
     Active Substance: FLUOROURACIL
     Indication: OESOPHAGEAL CARCINOMA
     Dosage: 750 MG/M2, CONTINUOUS INFUSION ON DAYS 1 AND 5 EVERY 3 WEEKS
     Route: 042
  2. CISPLATIN (CISPLATIN) [Suspect]
     Active Substance: CISPLATIN
     Indication: OESOPHAGEAL CARCINOMA
     Dosage: 75 MG/M2 ON DAY 1 EVERY 3 WEEKS
     Route: 042
  3. DOCETAXEL (DOCETAXEL) [Suspect]
     Active Substance: DOCETAXEL
     Indication: OESOPHAGEAL CARCINOMA
     Dosage: EVERY 3 WEEKS
     Route: 042

REACTIONS (3)
  - Thrombosis [None]
  - Disease recurrence [None]
  - Cerebral disorder [None]
